FAERS Safety Report 18256905 (Version 3)
Quarter: 2020Q3

REPORT INFORMATION
  Report Type: Report from Study
  Country: JP (occurrence: JP)
  Receive Date: 20200911
  Receipt Date: 20200925
  Transmission Date: 20201103
  Serious: Yes (Hospitalization)
  Sender: FDA-Public Use
  Company Number: NVSC2020JP245071

PATIENT
  Age: 47 Year
  Sex: Male

DRUGS (2)
  1. SECUKINUMAB. [Suspect]
     Active Substance: SECUKINUMAB
     Indication: HIDRADENITIS
     Dosage: 300 MG, Q2W
     Route: 058
     Dates: start: 20200702
  2. COSENTYX [Suspect]
     Active Substance: SECUKINUMAB
     Indication: HIDRADENITIS
     Dosage: 300 MG, Q2W
     Route: 058
     Dates: start: 20191024

REACTIONS (1)
  - Gastroenteritis [Recovered/Resolved]

NARRATIVE: CASE EVENT DATE: 20200902
